FAERS Safety Report 9586278 (Version 1)
Quarter: 2013Q4

REPORT INFORMATION
  Report Type: Report from Study
  Country: DE (occurrence: DE)
  Receive Date: 20131003
  Receipt Date: 20131003
  Transmission Date: 20140711
  Serious: Yes (Other)
  Sender: FDA-Public Use
  Company Number: DE-ROCHE-1284080

PATIENT
  Sex: Female

DRUGS (1)
  1. BEVACIZUMAB [Suspect]
     Indication: OVARIAN CANCER
     Dosage: LAST DOSE OF BEVACIZUMAB PRIOR TO THE EVENT WAS GIVEN ON 26-SEP-2013.
     Route: 042

REACTIONS (2)
  - Pruritus [Not Recovered/Not Resolved]
  - Anaphylactic shock [Unknown]
